FAERS Safety Report 24986162 (Version 1)
Quarter: 2025Q1

REPORT INFORMATION
  Report Type: Spontaneous
  Country: JP (occurrence: JP)
  Receive Date: 20250219
  Receipt Date: 20250219
  Transmission Date: 20250408
  Serious: Yes (Other)
  Sender: CHATTEM
  Company Number: JP-OPELLA-2025OHG004444

PATIENT
  Age: 9 Decade
  Sex: Male

DRUGS (1)
  1. XYZAL [Suspect]
     Active Substance: LEVOCETIRIZINE DIHYDROCHLORIDE
     Indication: Product used for unknown indication
     Dosage: 5 MG PER DOSE ONCE A DAY FOR 90 DAYS
     Route: 065
     Dates: start: 20250114

REACTIONS (4)
  - Pancytopenia [Unknown]
  - Decreased appetite [Unknown]
  - Malaise [Unknown]
  - Incorrect product administration duration [Unknown]
